FAERS Safety Report 6100087-4 (Version None)
Quarter: 2009Q1

REPORT INFORMATION
  Report Type: 
  Country: None (occurrence: None)
  Receive Date: 20090303
  Receipt Date: 20090302
  Transmission Date: 20090719
  Serious: Yes (Other)
  Sender: FDA-Public Use
  Company Number: B0562384A

PATIENT
  Age: 56 Year
  Sex: Male

DRUGS (4)
  1. ARIXTRA [Suspect]
     Indication: THROMBOSIS PROPHYLAXIS
     Dosage: 2.5MG PER DAY
     Route: 058
  2. CHINESE MEDICINE [Concomitant]
     Route: 048
  3. URSO 250 [Concomitant]
     Route: 048
  4. MIYA BM [Concomitant]
     Route: 048

REACTIONS (2)
  - ASCITES [None]
  - EMBOLISM VENOUS [None]
